FAERS Safety Report 7030583-7 (Version None)
Quarter: 2010Q4

REPORT INFORMATION
  Report Type: 
  Country: None (occurrence: None)
  Receive Date: 20101006
  Receipt Date: 20100927
  Transmission Date: 20110411
  Serious: Yes (Hospitalization, Other)
  Sender: FDA-Public Use
  Company Number: US-PURDUE-USA-2010-0047550

PATIENT
  Sex: Female

DRUGS (1)
  1. OXYCONTIN [Suspect]
     Indication: PAIN
     Dosage: 20 MG, SEE TEXT
     Dates: start: 20100801

REACTIONS (9)
  - CHEST PAIN [None]
  - CONVULSION [None]
  - INADEQUATE ANALGESIA [None]
  - LIVER INJURY [None]
  - PAIN [None]
  - RENAL INJURY [None]
  - SHOCK [None]
  - SURGERY [None]
  - VOMITING [None]
